FAERS Safety Report 9719202 (Version 3)
Quarter: 2014Q1

REPORT INFORMATION
  Report Type: Report from Study
  Country: CA (occurrence: CA)
  Receive Date: 20131127
  Receipt Date: 20140207
  Transmission Date: 20141002
  Serious: Yes (Other)
  Sender: FDA-Public Use
  Company Number: PHHY2013CA136837

PATIENT
  Sex: Female
  Weight: 58.96 kg

DRUGS (7)
  1. GILENYA [Suspect]
     Indication: RELAPSING-REMITTING MULTIPLE SCLEROSIS
     Dosage: 0.5 MG, QD
     Route: 048
     Dates: start: 20110906, end: 20120804
  2. GILENYA [Suspect]
     Dates: start: 20140121
  3. VITAMIN D [Concomitant]
  4. ZINC OXIDE [Concomitant]
  5. IRON [Concomitant]
  6. TYLENOL [Concomitant]
  7. ADVIL//IBUPROFEN [Concomitant]
     Dosage: 1 DF, PRN

REACTIONS (3)
  - Breast abscess [Recovered/Resolved]
  - Maternal exposure during pregnancy [Unknown]
  - Normal newborn [Unknown]
